FAERS Safety Report 7571891-0 (Version None)
Quarter: 2011Q2

REPORT INFORMATION
  Report Type: 
  Country: None (occurrence: None)
  Receive Date: 20110624
  Receipt Date: 20100708
  Transmission Date: 20111010
  Serious: No
  Sender: FDA-Public Use
  Company Number: A0871188A

PATIENT

DRUGS (1)
  1. VERAMYST [Suspect]

REACTIONS (1)
  - DEPRESSION [None]
